FAERS Safety Report 8816789 (Version 2)
Quarter: 2012Q4

REPORT INFORMATION
  Report Type: Spontaneous
  Country: JP (occurrence: None)
  Receive Date: 20121001
  Receipt Date: 20121031
  Transmission Date: 20130627
  Serious: Yes (Hospitalization)
  Sender: FDA-Public Use
  Company Number: DSA_59830_2012

PATIENT
  Age: 65 Year
  Sex: Female

DRUGS (5)
  1. DILTIAZEM HYDROCHLORIDE [Suspect]
     Indication: ATRIAL FIBRILLATION
     Route: 048
     Dates: end: 20120911
  2. ASPENON [Suspect]
     Route: 048
  3. DIOVANE [Concomitant]
  4. CARDENALIN [Concomitant]
  5. ALFAROL [Concomitant]

REACTIONS (2)
  - Agranulocytosis [None]
  - White blood cell count decreased [None]
